FAERS Safety Report 7810508-4 (Version None)
Quarter: 2011Q4

REPORT INFORMATION
  Report Type: 
  Country: None (occurrence: None)
  Receive Date: 20111012
  Receipt Date: 20111007
  Transmission Date: 20120403
  Serious: Yes (Other)
  Sender: FDA-Public Use
  Company Number: BE-BRISTOL-MYERS SQUIBB COMPANY-16142754

PATIENT
  Age: 73 Year
  Sex: Female

DRUGS (5)
  1. IBRUPROFEN [Concomitant]
  2. IRBESARTAN AND HYDROCHLOROTHIAZIDE [Suspect]
     Indication: HYPERTENSION
     Dosage: 1 DF=300MG/12.5MG PER DAY
  3. FEMARA [Concomitant]
     Indication: BREAST CANCER
     Dates: start: 20000101
  4. CALCIUM SUPPLEMENT [Concomitant]
  5. ALENDRONATE SODIUM [Concomitant]

REACTIONS (1)
  - PULMONARY FIBROSIS [None]
